FAERS Safety Report 18891616 (Version 1)
Quarter: 2021Q1

REPORT INFORMATION
  Report Type: Spontaneous
  Country: US (occurrence: US)
  Receive Date: 20210215
  Receipt Date: 20210215
  Transmission Date: 20210420
  Serious: No
  Sender: FDA-Public Use
  Company Number: US-SA-2021SA050420

PATIENT
  Age: 10 Year

DRUGS (1)
  1. DUPIXENT [Suspect]
     Active Substance: DUPILUMAB
     Dosage: UNK
     Dates: start: 202005

REACTIONS (2)
  - Hair colour changes [Unknown]
  - Skin depigmentation [Unknown]

NARRATIVE: CASE EVENT DATE: 202012
